FAERS Safety Report 18891547 (Version 1)
Quarter: 2021Q1

REPORT INFORMATION
  Report Type: Report from Study
  Country: CA (occurrence: CA)
  Receive Date: 20210215
  Receipt Date: 20210215
  Transmission Date: 20210420
  Serious: Yes (Other)
  Sender: FDA-Public Use
  Company Number: CA-KYOWAKIRIN-2021BKK001808

PATIENT

DRUGS (6)
  1. CRYSVITA [Suspect]
     Active Substance: BUROSUMAB-TWZA
     Indication: HEREDITARY HYPOPHOSPHATAEMIC RICKETS
     Dosage: 50 MG, EVERY 2 WEEKS
     Route: 058
     Dates: start: 20190320, end: 20191113
  2. CRYSVITA [Suspect]
     Active Substance: BUROSUMAB-TWZA
     Dosage: 60 MG Q 2 WEEKS
     Route: 058
     Dates: start: 20200610
  3. CRYSVITA [Suspect]
     Active Substance: BUROSUMAB-TWZA
     Indication: HEREDITARY HYPOPHOSPHATAEMIC RICKETS
     Dosage: UNK
     Route: 058
     Dates: start: 20150901, end: 20190221
  4. VITAMIN D [VITAMIN D NOS] [Concomitant]
     Active Substance: VITAMIN D NOS
     Indication: PRODUCT USED FOR UNKNOWN INDICATION
     Dosage: 7000 UNITS, ONCE WEEKLY
     Route: 048
     Dates: start: 20190215
  5. CALCIUM [Concomitant]
     Active Substance: CALCIUM
     Indication: LACTOSE INTOLERANCE
     Dosage: UNK
     Route: 065
  6. CRYSVITA [Suspect]
     Active Substance: BUROSUMAB-TWZA
     Dosage: 55 MG EVERY 2 WEEKS
     Route: 058
     Dates: start: 20191127, end: 20200527

REACTIONS (2)
  - Nephrocalcinosis [Unknown]
  - Pyelocaliectasis [Unknown]
